FAERS Safety Report 4312421-6 (Version None)
Quarter: 2004Q1

REPORT INFORMATION
  Report Type: 
  Country: None (occurrence: None)
  Receive Date: 20040304
  Receipt Date: 20040304
  Transmission Date: 20041129
  Serious: Yes (Hospitalization)
  Sender: FDA-Public Use
  Company Number: None

PATIENT
  Age: 57 Year
  Sex: Male
  Weight: 79.3 kg

DRUGS (4)
  1. TROPICAMIDE [Suspect]
  2. METOPROLOL [Concomitant]
  3. FELODIPINE [Concomitant]
  4. PHENYLEPHRINE [Concomitant]

REACTIONS (3)
  - HYPOTENSION [None]
  - PRURITUS [None]
  - RASH [None]
